FAERS Safety Report 5800404-6 (Version None)
Quarter: 2008Q3

REPORT INFORMATION
  Report Type: 
  Country: None (occurrence: None)
  Receive Date: 20080702
  Receipt Date: 20080702
  Transmission Date: 20090109
  Serious: Yes (Hospitalization)
  Sender: FDA-Public Use
  Company Number: None

PATIENT
  Age: 42 Year
  Sex: Male
  Weight: 81.6475 kg

DRUGS (2)
  1. LEVAQUIN [Suspect]
     Indication: UPPER RESPIRATORY TRACT INFECTION
     Dosage: 10 PILLS ONCE DAILY PO
     Route: 048
     Dates: start: 20080318, end: 20080328
  2. METHYLPREDNISOLONE [Suspect]
     Dosage: 1 DOSING PACK PO
     Route: 048
     Dates: start: 20080318, end: 20080324

REACTIONS (2)
  - LIGAMENT RUPTURE [None]
  - TENDONITIS [None]
